FAERS Safety Report 16516585 (Version 1)
Quarter: 2019Q3

REPORT INFORMATION
  Report Type: Spontaneous
  Country: US (occurrence: US)
  Receive Date: 20190702
  Receipt Date: 20190702
  Transmission Date: 20191004
  Serious: No
  Sender: FDA-Public Use
  Company Number: US-MIKART, LLC-2070202

PATIENT
  Sex: Female

DRUGS (7)
  1. LYRICA [Concomitant]
     Active Substance: PREGABALIN
     Route: 048
     Dates: start: 2008
  2. PROGESTERONE AND ESTROGEN [Concomitant]
  3. HYDROCODONE BITARTRATE AND ACETAMINOPHEN [Suspect]
     Active Substance: ACETAMINOPHEN\HYDROCODONE BITARTRATE
     Indication: NEURALGIA
     Route: 048
  4. UNSPECIFIED MEDICATIONS FOR MULTIPLE SCLEROSIS [Concomitant]
  5. UNSPECIFIED ANTI-ANXIETY MEDICATION [Concomitant]
  6. LYRICA [Concomitant]
     Active Substance: PREGABALIN
     Route: 048
     Dates: start: 200807
  7. UNSPECIFIED MUSCLE RELAXERS [Concomitant]

REACTIONS (1)
  - Drug ineffective [Unknown]
